FAERS Safety Report 10684082 (Version 3)
Quarter: 2017Q4

REPORT INFORMATION
  Report Type: Report from Study
  Country: AU (occurrence: AU)
  Receive Date: 20141230
  Receipt Date: 20171009
  Transmission Date: 20180320
  Serious: Yes (Life-Threatening, Hospitalization, Other)
  Sender: FDA-Public Use
  Company Number: PHHO2014AU017062

PATIENT
  Age: 86 Year
  Sex: Female
  Weight: 59 kg

DRUGS (6)
  1. WARFARIN [Suspect]
     Active Substance: WARFARIN
     Indication: ATRIAL FIBRILLATION
     Dosage: 4 MG, UNK
     Route: 065
     Dates: start: 201305, end: 20141223
  2. SOZOL [Concomitant]
     Indication: GASTROOESOPHAGEAL REFLUX DISEASE
     Dosage: DAILY
     Route: 065
     Dates: start: 201305
  3. RANIBIZUMAB. [Suspect]
     Active Substance: RANIBIZUMAB
     Dosage: 0.05 ML, UNK
     Route: 031
     Dates: start: 20141112, end: 20141112
  4. DIGOXIN. [Concomitant]
     Active Substance: DIGOXIN
     Indication: ATRIAL FIBRILLATION
     Dosage: 125 MG, QD
     Route: 065
     Dates: start: 201305
  5. WARFARIN [Suspect]
     Active Substance: WARFARIN
     Dosage: 4 MG, UNK
     Route: 065
  6. RANIBIZUMAB. [Suspect]
     Active Substance: RANIBIZUMAB
     Indication: NEOVASCULAR AGE-RELATED MACULAR DEGENERATION
     Dosage: 0.05 ML, UNK
     Route: 031
     Dates: start: 20140515

REACTIONS (2)
  - Transient ischaemic attack [Recovered/Resolved]
  - Lung neoplasm malignant [Recovered/Resolved]

NARRATIVE: CASE EVENT DATE: 20141001
